FAERS Safety Report 25483436 (Version 1)
Quarter: 2025Q2

REPORT INFORMATION
  Report Type: Report from Study
  Country: US (occurrence: US)
  Receive Date: 20250626
  Receipt Date: 20250626
  Transmission Date: 20250716
  Serious: Yes (Hospitalization, Other)
  Sender: BOEHRINGER INGELHEIM
  Company Number: US-BoehringerIngelheim-2024-BI-028091

PATIENT
  Sex: Female

DRUGS (2)
  1. OFEV [Suspect]
     Active Substance: NINTEDANIB
     Indication: Idiopathic pulmonary fibrosis
  2. ELIQUIS [Concomitant]
     Active Substance: APIXABAN
     Indication: Product used for unknown indication

REACTIONS (17)
  - Vein rupture [Unknown]
  - COVID-19 [Not Recovered/Not Resolved]
  - Pulmonary embolism [Unknown]
  - Pneumonia [Not Recovered/Not Resolved]
  - Dizziness [Unknown]
  - Gastroenteritis viral [Unknown]
  - Malaise [Unknown]
  - Diarrhoea [Not Recovered/Not Resolved]
  - Peripheral swelling [Unknown]
  - Asthenia [Unknown]
  - Abdominal pain upper [Unknown]
  - Muscular weakness [Unknown]
  - Nausea [Unknown]
  - Petechiae [Unknown]
  - Increased tendency to bruise [Unknown]
  - Seasonal allergy [Unknown]
  - Thoracic vertebral fracture [Unknown]
